FAERS Safety Report 17639570 (Version 1)
Quarter: 2020Q2

REPORT INFORMATION
  Report Type: Spontaneous
  Country: ES (occurrence: ES)
  Receive Date: 20200407
  Receipt Date: 20200407
  Transmission Date: 20200713
  Serious: Yes (Hospitalization)
  Sender: FDA-Public Use
  Company Number: ES-TEVA-2020-ES-1219852

PATIENT
  Age: 81 Year
  Sex: Female

DRUGS (6)
  1. TORASEMIDA (2351A) [Suspect]
     Active Substance: TORSEMIDE
     Indication: OEDEMA
     Route: 048
     Dates: start: 2019
  2. URSOBILANE 150 MG CAPSULAS, 60 C?PSULAS [Concomitant]
     Indication: PRIMARY BILIARY CHOLANGITIS
     Route: 048
  3. TRAMADOL HIDROCLORURO (2389CH) [Concomitant]
     Active Substance: TRAMADOL
     Indication: PAIN
     Route: 048
  4. ESPIRONOLACTONA (326A) [Suspect]
     Active Substance: SPIRONOLACTONE
     Indication: ASCITES
     Dosage: 50 MG 1 DAYS
     Route: 048
     Dates: start: 20191224, end: 20200121
  5. OMEPRAZOL (2141A) [Concomitant]
     Active Substance: OMEPRAZOLE
     Indication: PRIMARY BILIARY CHOLANGITIS
     Route: 048
  6. ATORVASTATINA (7400A) [Concomitant]
     Active Substance: ATORVASTATIN
     Indication: DYSLIPIDAEMIA
     Route: 048

REACTIONS (3)
  - Thrombocytopenia [Recovered/Resolved]
  - Bicytopenia [Recovered/Resolved]
  - Agranulocytosis [Recovered/Resolved]

NARRATIVE: CASE EVENT DATE: 20200116
